FAERS Safety Report 25449495 (Version 1)
Quarter: 2025Q2

REPORT INFORMATION
  Report Type: Spontaneous
  Country: US (occurrence: US)
  Receive Date: 20250618
  Receipt Date: 20250618
  Transmission Date: 20250717
  Serious: No
  Sender: TARO
  Company Number: US-TARO PHARMACEUTICALS USA INC.-2024TAR02248

PATIENT

DRUGS (2)
  1. FEVERALL [Suspect]
     Active Substance: ACETAMINOPHEN
     Indication: Ear infection
     Route: 054
     Dates: start: 20241103
  2. AMOXICILLIN [Concomitant]
     Active Substance: AMOXICILLIN
     Indication: Ear infection
     Route: 065

REACTIONS (2)
  - Pain [Recovered/Resolved]
  - Product use issue [Unknown]

NARRATIVE: CASE EVENT DATE: 20241103
